FAERS Safety Report 7588101-0 (Version None)
Quarter: 2011Q3

REPORT INFORMATION
  Report Type: 
  Country: None (occurrence: None)
  Receive Date: 20110705
  Receipt Date: 20110630
  Transmission Date: 20111222
  Serious: Yes (Other)
  Sender: FDA-Public Use
  Company Number: US-PFIZER INC-2011134187

PATIENT
  Sex: Female
  Weight: 120 kg

DRUGS (4)
  1. FUROSEMIDE [Concomitant]
     Indication: HYPERTENSION
     Dosage: 10 MG, DAILY
  2. CELEBREX [Suspect]
     Indication: OEDEMA PERIPHERAL
     Dosage: 200 MG, DAILY
     Route: 048
     Dates: start: 20110609, end: 20110615
  3. CELEBREX [Suspect]
     Indication: ARTHRITIS
  4. COUMADIN [Concomitant]
     Indication: ANTICOAGULANT THERAPY
     Dosage: 7.5 MG, DAILY

REACTIONS (3)
  - HYPERHIDROSIS [None]
  - DYSPNOEA [None]
  - DRUG INEFFECTIVE [None]
